FAERS Safety Report 20865444 (Version 2)
Quarter: 2022Q2

REPORT INFORMATION
  Report Type: Report from Study
  Country: US (occurrence: US)
  Receive Date: 20220524
  Receipt Date: 20220620
  Transmission Date: 20220721
  Serious: Yes (Other)
  Sender: FDA-Public Use
  Company Number: US-BRISTOL-MYERS SQUIBB COMPANY-2022-021796

PATIENT
  Age: 63 Year
  Sex: Female
  Weight: 88.9 kg

DRUGS (2)
  1. REVLIMID [Suspect]
     Active Substance: LENALIDOMIDE
     Indication: Plasma cell myeloma
     Dosage: 28/BTL?FREQUENCY DAILY 21 DAYS
     Route: 048
     Dates: start: 20220314
  2. REVLIMID [Suspect]
     Active Substance: LENALIDOMIDE
     Indication: Neoplasm malignant
     Route: 048

REACTIONS (6)
  - Hepatic enzyme increased [Unknown]
  - Pain [Unknown]
  - Fatigue [Unknown]
  - Abdominal discomfort [Unknown]
  - Neutropenia [Unknown]
  - Liver function test abnormal [Not Recovered/Not Resolved]

NARRATIVE: CASE EVENT DATE: 20220201
